FAERS Safety Report 13118534 (Version 3)
Quarter: 2017Q2

REPORT INFORMATION
  Report Type: Spontaneous
  Country: US (occurrence: US)
  Receive Date: 20170116
  Receipt Date: 20170605
  Transmission Date: 20170830
  Serious: Yes (Hospitalization, Other)
  Sender: FDA-Public Use
  Company Number: US-PFIZER INC-2017011813

PATIENT
  Age: 1 Year
  Sex: Female
  Weight: 10 kg

DRUGS (7)
  1. GENOTROPIN MQ [Suspect]
     Active Substance: SOMATROPIN
     Indication: HYPOTONIA
     Dosage: 0.6 MG, UNK
  2. GENOTROPIN MQ [Suspect]
     Active Substance: SOMATROPIN
     Indication: PRADER-WILLI SYNDROME
     Dosage: 0.8 MG, DAILY
     Dates: start: 201007
  3. ZANTAC [Concomitant]
     Active Substance: RANITIDINE HYDROCHLORIDE
     Dosage: 2 ML, 1X/DAY (NIGHTLY AT BEDTIME)
     Route: 048
  4. GENOTROPIN MQ [Suspect]
     Active Substance: SOMATROPIN
     Dosage: 6 MG, 1X/DAY (INJECTED ONCE AT NIGHT)
  5. CARNITINE [Concomitant]
     Active Substance: CARNITINE
     Dosage: 2 ML, DAILY
     Route: 048
  6. CARNITINE [Concomitant]
     Active Substance: CARNITINE
     Dosage: UNK
  7. ZANTAC [Concomitant]
     Active Substance: RANITIDINE HYDROCHLORIDE
     Dosage: UNK, AS NEEDED

REACTIONS (14)
  - Scoliosis [Not Recovered/Not Resolved]
  - Sleep disorder [Not Recovered/Not Resolved]
  - Brachial plexus injury [Unknown]
  - Torticollis [Not Recovered/Not Resolved]
  - Condition aggravated [Unknown]
  - Product use issue [Unknown]
  - Abnormal behaviour [Unknown]
  - Hypotonia [Unknown]
  - Hyperphagia [Unknown]
  - Road traffic accident [Unknown]
  - Dyspraxia [Unknown]
  - Seizure [Not Recovered/Not Resolved]
  - Weight increased [Unknown]
  - Drug dose omission [Not Recovered/Not Resolved]

NARRATIVE: CASE EVENT DATE: 20170528
